FAERS Safety Report 16655290 (Version 1)
Quarter: 2019Q3

REPORT INFORMATION
  Report Type: Spontaneous
  Country: DE (occurrence: DE)
  Receive Date: 20190801
  Receipt Date: 20190801
  Transmission Date: 20191004
  Serious: Yes (Other)
  Sender: FDA-Public Use
  Company Number: DE-AUROBINDO-AUR-APL-2019-044567

PATIENT

DRUGS (6)
  1. CANDESARTAN TABLETS [Suspect]
     Active Substance: CANDESARTAN
     Indication: HYPERTENSION
     Dosage: 2 UNK, ONCE A DAY, UNK UNK, BID
     Route: 065
  2. LERCANIDIPINE FILM-COATED [Suspect]
     Active Substance: LERCANIDIPINE
     Indication: HYPERTENSION
     Dosage: 2 UNK, ONCE A DAY, UNK UNK, BID(1-0-0.5)
     Route: 065
  3. LATANOPROST;TIMOLOL MALEATE [Suspect]
     Active Substance: LATANOPROST\TIMOLOL MALEATE
     Indication: PRODUCT USED FOR UNKNOWN INDICATION
     Dosage: UNK
     Route: 065
  4. ASS TABLET [Suspect]
     Active Substance: ASPIRIN
     Indication: HYPERTENSION
     Dosage: 1 UNK, ONCE A DAY, UNK, QD
     Route: 065
  5. CARVEDILOL FILM-COATED TABLETS [Suspect]
     Active Substance: CARVEDILOL
     Indication: HYPERTENSION
     Dosage: 2 UNK, ONCE A DAY, UNK UNK, BID(1-0-0.5)
     Route: 065
  6. DORZOLAMID AL [Suspect]
     Active Substance: DORZOLAMIDE HYDROCHLORIDE
     Indication: PRODUCT USED FOR UNKNOWN INDICATION
     Dosage: 2 UNK, ONCE A DAY, UNK, UNK, BID(ON BOTH EYES)
     Route: 047

REACTIONS (5)
  - Arrhythmia [Unknown]
  - Heart rate irregular [Unknown]
  - Palpitations [Unknown]
  - Product use in unapproved indication [Unknown]
  - Blood pressure increased [Unknown]
